FAERS Safety Report 6022029-2 (Version None)
Quarter: 2008Q4

REPORT INFORMATION
  Report Type: 
  Country: None (occurrence: None)
  Receive Date: 20081223
  Receipt Date: 20081208
  Transmission Date: 20090506
  Serious: Yes (Death)
  Sender: FDA-Public Use
  Company Number: 2008S1019897

PATIENT
  Age: 20 Year
  Sex: Male
  Weight: 71.6683 kg

DRUGS (2)
  1. FENTANYL TRANSDERMAL SYSTEM [Suspect]
  2. CLONAZEPAM [Concomitant]

REACTIONS (3)
  - ACCIDENTAL OVERDOSE [None]
  - DRUG TOXICITY [None]
  - SELF-MEDICATION [None]
